FAERS Safety Report 23921891 (Version 1)
Quarter: 2024Q2

REPORT INFORMATION
  Report Type: Spontaneous
  Country: RO (occurrence: RO)
  Receive Date: 20240530
  Receipt Date: 20240530
  Transmission Date: 20240715
  Serious: Yes (Other)
  Sender: FDA-Public Use
  Company Number: RO-009507513-2405ROU006794

PATIENT
  Age: 28 Year
  Sex: Female

DRUGS (16)
  1. RALTEGRAVIR POTASSIUM [Suspect]
     Active Substance: RALTEGRAVIR POTASSIUM
     Indication: HIV infection
     Route: 048
  2. EFAVIRENZ [Suspect]
     Active Substance: EFAVIRENZ
     Indication: HIV infection
     Route: 048
  3. DORAVIRINE [Suspect]
     Active Substance: DORAVIRINE
     Indication: HIV infection
     Route: 048
  4. STAVUDINE [Concomitant]
     Active Substance: STAVUDINE
     Indication: HIV infection
  5. LAMIVUDINE [Concomitant]
     Active Substance: LAMIVUDINE
     Indication: HIV infection
  6. ABACAVIR [Concomitant]
     Active Substance: ABACAVIR
     Indication: HIV infection
  7. ETRAVIRINE [Concomitant]
     Active Substance: ETRAVIRINE
     Indication: HIV infection
  8. LOPINAVIR\RITONAVIR [Concomitant]
     Active Substance: LOPINAVIR\RITONAVIR
     Indication: HIV infection
  9. DARUNAVIR\RITONAVIR [Concomitant]
     Active Substance: DARUNAVIR\RITONAVIR
     Indication: HIV infection
  10. ATAZANAVIR\RITONAVIR [Concomitant]
     Active Substance: ATAZANAVIR\RITONAVIR
     Indication: HIV infection
  11. LAMIVUDINE\ZIDOVUDINE [Concomitant]
     Active Substance: LAMIVUDINE\ZIDOVUDINE
     Indication: HIV infection
  12. ELVITEGRAVIR [Concomitant]
     Active Substance: ELVITEGRAVIR
     Indication: HIV infection
  13. COBICISTAT [Concomitant]
     Active Substance: COBICISTAT
     Indication: HIV infection
  14. EMTRICITABINE [Concomitant]
     Active Substance: EMTRICITABINE
     Indication: HIV infection
  15. TENOFOVIR [Concomitant]
     Active Substance: TENOFOVIR
     Indication: HIV infection
  16. DOLUTEGRAVIR [Concomitant]
     Active Substance: DOLUTEGRAVIR
     Indication: HIV infection

REACTIONS (12)
  - Aortic arteriosclerosis [Unknown]
  - Coeliac artery stenosis [Unknown]
  - Mesenteric artery stenosis [Unknown]
  - Renal artery stenosis [Unknown]
  - Duodenitis [Unknown]
  - Lymphadenopathy [Unknown]
  - Psychotherapy [Unknown]
  - Mental fatigue [Unknown]
  - Blood HIV RNA increased [Unknown]
  - CD4 lymphocytes decreased [Unknown]
  - Drug resistance mutation [Unknown]
  - Treatment noncompliance [Unknown]

NARRATIVE: CASE EVENT DATE: 20160101
